FAERS Safety Report 10907924 (Version 1)
Quarter: 2015Q1

REPORT INFORMATION
  Report Type: Spontaneous
  Country: US (occurrence: US)
  Receive Date: 20150312
  Receipt Date: 20150312
  Transmission Date: 20150721
  Serious: No
  Sender: FDA-Public Use
  Company Number: US-009507513-1503USA002905

PATIENT
  Sex: Female

DRUGS (1)
  1. TINACTIN [Suspect]
     Active Substance: TOLNAFTATE
     Indication: TINEA PEDIS
     Dosage: UNK, UNKNOWN
     Route: 061
     Dates: start: 201409, end: 20150228

REACTIONS (2)
  - Application site scab [Not Recovered/Not Resolved]
  - Incorrect drug administration duration [Unknown]
